FAERS Safety Report 4751701-7 (Version None)
Quarter: 2005Q3

REPORT INFORMATION
  Report Type: 
  Country: None (occurrence: None)
  Receive Date: 20050824
  Receipt Date: 20050815
  Transmission Date: 20060218
  Serious: Yes (Hospitalization)
  Sender: FDA-Public Use
  Company Number: US-BRISTOL-MYERS SQUIBB COMPANY-13078324

PATIENT
  Age: 13 Year
  Sex: Male

DRUGS (3)
  1. ABILIFY [Suspect]
  2. TRAZODONE HCL [Suspect]
  3. CLONIDINE [Suspect]

REACTIONS (3)
  - ACCIDENTAL DRUG INTAKE BY CHILD [None]
  - ACCIDENTAL EXPOSURE [None]
  - DRUG TOXICITY [None]
